FAERS Safety Report 21472120 (Version 3)
Quarter: 2023Q1

REPORT INFORMATION
  Report Type: Report from Study
  Country: US (occurrence: None)
  Receive Date: 20221018
  Receipt Date: 20230228
  Transmission Date: 20230417
  Serious: Yes (Hospitalization, Other)
  Sender: FDA-Public Use
  Company Number: US-Eisai Medical Research-EC-2022-125505

PATIENT
  Age: 75 Year
  Sex: Female
  Weight: 93.16 kg

DRUGS (15)
  1. LENVIMA [Suspect]
     Active Substance: LENVATINIB
     Indication: Endometrial cancer
     Route: 048
     Dates: start: 20220912, end: 20221004
  2. LENVIMA [Suspect]
     Active Substance: LENVATINIB
     Route: 048
     Dates: start: 20221006
  3. ASPIRIN [Concomitant]
     Active Substance: ASPIRIN
  4. CIMETIDINE [Concomitant]
     Active Substance: CIMETIDINE
  5. CHONDROITIN SULFATE (BOVINE)\GLUCOSAMINE SULFATE [Concomitant]
     Active Substance: CHONDROITIN SULFATE (BOVINE)\GLUCOSAMINE SULFATE
  6. HYDROCHLOROTHIAZIDE [Concomitant]
     Active Substance: HYDROCHLOROTHIAZIDE
  7. KEYTRUDA [Concomitant]
     Active Substance: PEMBROLIZUMAB
     Indication: Product used for unknown indication
     Dosage: DOSE AND FREQUENCY UNKNOWN
     Route: 041
  8. MAGNESIUM [Concomitant]
     Active Substance: MAGNESIUM
  9. METOPROLOL SUCCINATE [Concomitant]
     Active Substance: METOPROLOL SUCCINATE
  10. ROSUVASTATIN CALCIUM [Concomitant]
     Active Substance: ROSUVASTATIN CALCIUM
  11. TYLENOL [Concomitant]
     Active Substance: ACETAMINOPHEN
  12. VITAMIN C [Concomitant]
     Active Substance: ASCORBIC ACID
  13. VITAMIN D3 [Concomitant]
     Active Substance: CHOLECALCIFEROL
  14. ZINC [Concomitant]
     Active Substance: ZINC
  15. CARVEDILOL [Concomitant]
     Active Substance: CARVEDILOL

REACTIONS (11)
  - Cerebrovascular accident [Unknown]
  - Blood pressure increased [Recovered/Resolved]
  - Headache [Not Recovered/Not Resolved]
  - Arthralgia [Unknown]
  - Myalgia [Unknown]
  - Asthenia [Unknown]
  - Cardiac flutter [Unknown]
  - Memory impairment [Unknown]
  - Gingival pain [Recovered/Resolved]
  - Hypoaesthesia [Recovering/Resolving]
  - Product packaging issue [Unknown]

NARRATIVE: CASE EVENT DATE: 20220101
